APPROVED DRUG PRODUCT: CHLOROMYCETIN
Active Ingredient: CHLORAMPHENICOL
Strength: 1%
Dosage Form/Route: CREAM;TOPICAL
Application: N050183 | Product #001
Applicant: PARKE DAVIS PHARMACEUTICAL RESEARCH DIV WARNER LAMBERT CO
Approved: Approved Prior to Jan 1, 1982 | RLD: No | RS: No | Type: DISCN